FAERS Safety Report 9156017 (Version 1)
Quarter: 2013Q1

REPORT INFORMATION
  Report Type: Spontaneous
  Country: US (occurrence: US)
  Receive Date: 20130311
  Receipt Date: 20130311
  Transmission Date: 20140127
  Serious: Yes (Other)
  Sender: FDA-Public Use
  Company Number: US-PFIZER INC-2013078221

PATIENT
  Age: 86 Year
  Sex: Female

DRUGS (1)
  1. GLIBENCLAMIDE [Suspect]
     Dosage: UNK

REACTIONS (2)
  - Hypoglycaemia [Unknown]
  - Drug hypersensitivity [Unknown]
